FAERS Safety Report 4850908-8 (Version None)
Quarter: 2005Q4

REPORT INFORMATION
  Report Type: 
  Country: None (occurrence: None)
  Receive Date: 20051212
  Receipt Date: 20051206
  Transmission Date: 20060501
  Serious: Yes (Other)
  Sender: FDA-Public Use
  Company Number: GB-GLAXOSMITHKLINE-B0402892A

PATIENT
  Age: 69 Year
  Sex: Female

DRUGS (6)
  1. LITHIUM CARBONATE [Suspect]
     Indication: DEPRESSION
     Dosage: 500MG UNKNOWN
     Route: 048
     Dates: start: 20050201, end: 20051101
  2. TRAZODONE HCL [Suspect]
     Indication: DEPRESSION
     Dosage: 200MG UNKNOWN
     Route: 048
     Dates: start: 20051004
  3. PAROXETINE HCL [Concomitant]
     Indication: DEPRESSION
     Dosage: 10MG PER DAY
     Route: 048
     Dates: start: 19970401
  4. HALOPERIDOL [Concomitant]
     Indication: ANXIETY
     Dosage: .5MG TWICE PER DAY
     Route: 048
     Dates: start: 20030201
  5. ATORVASTATIN CALCIUM [Concomitant]
     Indication: BLOOD CHOLESTEROL INCREASED
     Dosage: 40MG PER DAY
     Route: 048
  6. CLOPIDOGREL [Concomitant]
     Dosage: 75MG PER DAY
     Route: 048

REACTIONS (2)
  - ANTIPSYCHOTIC DRUG LEVEL INCREASED [None]
  - DRUG INTERACTION [None]
